FAERS Safety Report 11636776 (Version 1)
Quarter: 2015Q4

REPORT INFORMATION
  Report Type: Spontaneous
  Country: CO (occurrence: CO)
  Receive Date: 20151016
  Receipt Date: 20151016
  Transmission Date: 20160304
  Serious: Yes (Hospitalization)
  Sender: FDA-Public Use
  Company Number: CO-NOVOPROD-466731

PATIENT
  Age: 57 Year
  Sex: Male
  Weight: 80 kg

DRUGS (8)
  1. NPH                                /00030513/ [Concomitant]
     Dosage: UNK (25 IU AT 10 PM)
     Route: 058
  2. METFORMIN [Concomitant]
     Active Substance: METFORMIN HYDROCHLORIDE
     Dosage: 1 TABLET AFTER EACH FOOD
     Route: 048
  3. LEVEMIR [Suspect]
     Active Substance: INSULIN DETEMIR
     Indication: TYPE 1 DIABETES MELLITUS
     Dosage: 12 IU, QD
     Route: 058
     Dates: start: 20150622, end: 20150727
  4. INSULIN [Concomitant]
     Active Substance: INSULIN NOS
     Dosage: UNK (7IU-7IU-7IU)
     Route: 058
  5. NAPROXEN. [Concomitant]
     Active Substance: NAPROXEN
     Dosage: 1 EVERY 12 HOURS
     Route: 048
  6. ASA [Concomitant]
     Active Substance: ASPIRIN
     Dosage: 1 AFTER LUNCH
     Route: 048
  7. ATORVASTATIN [Concomitant]
     Active Substance: ATORVASTATIN
     Dosage: 1 IN THE NIGHTS - BEFORE GOING TO BED
     Route: 048
  8. NPH                                /00030513/ [Concomitant]
     Dosage: UNK (12IU-8AM AND 12IU-8PM)
     Route: 058

REACTIONS (2)
  - Dementia [Unknown]
  - Epilepsy [Unknown]

NARRATIVE: CASE EVENT DATE: 20150727
